FAERS Safety Report 15464858 (Version 1)
Quarter: 2018Q4

REPORT INFORMATION
  Report Type: Spontaneous
  Country: FR (occurrence: FR)
  Receive Date: 20181004
  Receipt Date: 20181004
  Transmission Date: 20190204
  Serious: Yes (Hospitalization)
  Sender: FDA-Public Use
  Company Number: FR-009507513-1810FRA000395

PATIENT
  Age: 63 Year
  Sex: Male
  Weight: 57 kg

DRUGS (7)
  1. PEMBROLIZUMAB. [Suspect]
     Active Substance: PEMBROLIZUMAB
     Dosage: 115 MG, Q3W (4 PERFUSIONS IN TOTAL)
     Route: 041
     Dates: start: 20150121, end: 20150401
  2. CARDENSIEL [Concomitant]
     Active Substance: BISOPROLOL FUMARATE
     Dosage: 5 MG, QD
     Route: 048
  3. DEPAKOTE [Concomitant]
     Active Substance: DIVALPROEX SODIUM
     Dosage: 1000 MG, QD
     Route: 048
  4. LOSARTAN SANDOZ [Concomitant]
     Active Substance: LOSARTAN
     Dosage: 50 MG, QD
     Route: 048
  5. AMLOR [Concomitant]
     Active Substance: AMLODIPINE BESYLATE
     Route: 048
  6. OMEXEL [Concomitant]
     Active Substance: TAMSULOSIN HYDROCHLORIDE
     Route: 048
  7. LASILIX [Concomitant]
     Active Substance: FUROSEMIDE
     Route: 048

REACTIONS (5)
  - Pancytopenia [Not Recovered/Not Resolved]
  - Synovitis [Not Recovered/Not Resolved]
  - Autoantibody positive [Not Recovered/Not Resolved]
  - Oedema peripheral [Recovered/Resolved]
  - Arterial thrombosis [Recovering/Resolving]

NARRATIVE: CASE EVENT DATE: 201503
